FAERS Safety Report 8419171-5 (Version None)
Quarter: 2012Q2

REPORT INFORMATION
  Report Type: 
  Country: None (occurrence: None)
  Receive Date: 20120607
  Receipt Date: 20120604
  Transmission Date: 20120825
  Serious: No
  Sender: FDA-Public Use
  Company Number: US-PFIZER INC-2007085208

PATIENT
  Sex: Female

DRUGS (4)
  1. CHANTIX [Suspect]
     Indication: SMOKING CESSATION THERAPY
     Dosage: UNK
     Dates: start: 20070701, end: 20070101
  2. HYDROCHLOROTHIAZDE TAB [Concomitant]
  3. TOPROL-XL [Concomitant]
  4. ACETYLSALICYLIC ACID SRT [Concomitant]

REACTIONS (5)
  - WEIGHT INCREASED [None]
  - SLEEP DISORDER [None]
  - BLOOD CHOLESTEROL INCREASED [None]
  - NAUSEA [None]
  - ABNORMAL DREAMS [None]
